FAERS Safety Report 24275191 (Version 1)
Quarter: 2024Q3

REPORT INFORMATION
  Report Type: Report from Study
  Country: US (occurrence: US)
  Receive Date: 20240903
  Receipt Date: 20240903
  Transmission Date: 20241017
  Serious: Yes (Hospitalization, Other)
  Sender: ABBVIE
  Company Number: US-ABBVIE-5892817

PATIENT
  Age: 56 Year
  Sex: Female
  Weight: 73.481 kg

DRUGS (9)
  1. HUMIRA [Suspect]
     Active Substance: ADALIMUMAB
     Indication: Psoriatic arthropathy
     Dosage: FORM STRENGTH - 40 MILLIGRAM
     Route: 058
     Dates: start: 2022, end: 202407
  2. HUMIRA [Suspect]
     Active Substance: ADALIMUMAB
     Indication: Psoriasis
  3. HUMIRA [Suspect]
     Active Substance: ADALIMUMAB
     Indication: Rheumatoid arthritis
  4. NEXIUM [Concomitant]
     Active Substance: ESOMEPRAZOLE MAGNESIUM
     Indication: Gastrooesophageal reflux disease
  5. FLEXERIL [Concomitant]
     Active Substance: CYCLOBENZAPRINE HYDROCHLORIDE
     Indication: Muscle spasms
  6. ROPINIROLE [Concomitant]
     Active Substance: ROPINIROLE
     Indication: Restless legs syndrome
  7. PILOCARPINE [Concomitant]
     Active Substance: PILOCARPINE
     Indication: Sjogren^s syndrome
  8. METOPROLOL [Concomitant]
     Active Substance: METOPROLOL
     Indication: Hypertension
  9. HYDROCHLOROTHIAZIDE [Concomitant]
     Active Substance: HYDROCHLOROTHIAZIDE
     Indication: Hypertension

REACTIONS (9)
  - Spinal osteoarthritis [Not Recovered/Not Resolved]
  - Joint effusion [Not Recovered/Not Resolved]
  - Angioedema [Not Recovered/Not Resolved]
  - Arthritis [Unknown]
  - Spinal disorder [Recovering/Resolving]
  - Investigation abnormal [Unknown]
  - Respiratory disorder [Unknown]
  - Osteoarthritis [Unknown]
  - Peripheral nerve injury [Unknown]

NARRATIVE: CASE EVENT DATE: 20220830
